FAERS Safety Report 9147230 (Version 2)
Quarter: 2013Q2

REPORT INFORMATION
  Report Type: Report from Study
  Country: DE (occurrence: DE)
  Receive Date: 20130307
  Receipt Date: 20130521
  Transmission Date: 20140414
  Serious: Yes (Hospitalization)
  Sender: FDA-Public Use
  Company Number: DE-ABBOTT-13P-062-1058486-00

PATIENT
  Age: 58 Year
  Sex: Female
  Weight: 66 kg

DRUGS (4)
  1. HUMIRA [Suspect]
     Indication: ANKYLOSING SPONDYLITIS
     Route: 058
     Dates: start: 201112
  2. ARAVA [Concomitant]
     Indication: PRODUCT USED FOR UNKNOWN INDICATION
  3. IBUPROFEN [Concomitant]
     Indication: PRODUCT USED FOR UNKNOWN INDICATION
  4. PRAVA [Concomitant]
     Indication: HYPERCHOLESTEROLAEMIA
     Dates: start: 201103

REACTIONS (4)
  - Rheumatic disorder [Unknown]
  - Nasopharyngitis [Not Recovered/Not Resolved]
  - Ankylosing spondylitis [Recovered/Resolved]
  - Drug ineffective [Unknown]
